FAERS Safety Report 7098929-1 (Version None)
Quarter: 2010Q4

REPORT INFORMATION
  Report Type: 
  Country: None (occurrence: None)
  Receive Date: 20101110
  Receipt Date: 20101110
  Transmission Date: 20110411
  Serious: Yes (Hospitalization)
  Sender: FDA-Public Use
  Company Number: None

PATIENT
  Age: 67 Year
  Sex: Male
  Weight: 98.8842 kg

DRUGS (6)
  1. CLOFARABINE [Suspect]
     Indication: ACUTE MYELOID LEUKAEMIA
     Dosage: 4 MG PO DAILY X 21 DAYS
     Route: 048
     Dates: start: 20100908, end: 20101026
  2. OMEPRAZOLE [Concomitant]
  3. MOXIFLOXICAN [Concomitant]
  4. ACYCLOVIR SODIUM [Concomitant]
  5. TOPAMAX [Concomitant]
  6. FLOVENT [Concomitant]

REACTIONS (2)
  - BACTERIAL INFECTION [None]
  - PYREXIA [None]
